FAERS Safety Report 6702297-1 (Version None)
Quarter: 2010Q2

REPORT INFORMATION
  Report Type: 
  Country: None (occurrence: None)
  Receive Date: 20100429
  Receipt Date: 20100426
  Transmission Date: 20101027
  Serious: Yes (Hospitalization, Other)
  Sender: FDA-Public Use
  Company Number: DE-BRISTOL-MYERS SQUIBB COMPANY-15043094

PATIENT
  Age: 55 Year
  Sex: Male
  Weight: 50 kg

DRUGS (3)
  1. CETUXIMAB [Suspect]
     Indication: NON-SMALL CELL LUNG CANCER
     Dosage: RECNT INFU:24MAR,400MG/M2 ON DAY (24FEB10) FOLLOWED BY 250MG/M2 WEEKLY DOSE,RESTARTED ON 7APR2010
     Route: 042
     Dates: start: 20100224, end: 20100324
  2. CARBOPLATIN [Suspect]
     Indication: NON-SMALL CELL LUNG CANCER
     Dosage: MOST RECENT INFU:17-MAR-2010
     Route: 042
     Dates: start: 20100224
  3. GEMCITABINE HCL [Suspect]
     Indication: NON-SMALL CELL LUNG CANCER
     Dosage: DAY 1 + 8 OF EVERY 3 WEEKS MOST RECENT INFU:24-MAR-2010
     Route: 042
     Dates: start: 20100224

REACTIONS (5)
  - ASTHENIA [None]
  - DEHYDRATION [None]
  - GENERAL PHYSICAL HEALTH DETERIORATION [None]
  - NAUSEA [None]
  - WEIGHT DECREASED [None]
